FAERS Safety Report 7437245-2 (Version None)
Quarter: 2011Q2

REPORT INFORMATION
  Report Type: 
  Country: None (occurrence: None)
  Receive Date: 20110426
  Receipt Date: 20110421
  Transmission Date: 20111010
  Serious: Yes (Hospitalization)
  Sender: FDA-Public Use
  Company Number: US-BRISTOL-MYERS SQUIBB COMPANY-15690944

PATIENT
  Age: 17 Year
  Sex: Male

DRUGS (1)
  1. ABILIFY [Suspect]
     Dosage: REDUCED TO 5 MG AND INCREASED THE DOSE UP TO 7.5MG

REACTIONS (3)
  - TIC [None]
  - PSYCHOTIC DISORDER [None]
  - VISION BLURRED [None]
